FAERS Safety Report 21500245 (Version 4)
Quarter: 2024Q2

REPORT INFORMATION
  Report Type: Other
  Country: JP (occurrence: JP)
  Receive Date: 20221024
  Receipt Date: 20240506
  Transmission Date: 20240716
  Serious: Yes (Death, Hospitalization, Other)
  Sender: FDA-Public Use
  Company Number: JP-CHUGAI-2022039529

PATIENT
  Age: 75 Year
  Sex: Female

DRUGS (3)
  1. TECENTRIQ [Suspect]
     Active Substance: ATEZOLIZUMAB
     Indication: Hepatocellular carcinoma
     Dosage: 1200 MILLIGRAM, SINGLE
     Route: 041
     Dates: start: 20220922
  2. AVASTIN [Suspect]
     Active Substance: BEVACIZUMAB
     Indication: Hepatocellular carcinoma
     Dosage: 15 MILLIGRAM, SINGLE?700 MG, SINGLE
     Route: 041
     Dates: start: 20220922
  3. LENVATINIB [Concomitant]
     Active Substance: LENVATINIB

REACTIONS (8)
  - Hepatocellular carcinoma [Fatal]
  - Pyrexia [Recovered/Resolved]
  - Encephalitis [Recovered/Resolved]
  - Meningitis [Recovered/Resolved]
  - Guillain-Barre syndrome [Recovering/Resolving]
  - Cytopenia [Recovered/Resolved]
  - Inappropriate antidiuretic hormone secretion [Unknown]
  - Liver disorder [Recovered/Resolved]

NARRATIVE: CASE EVENT DATE: 20220923
